FAERS Safety Report 15791665 (Version 2)
Quarter: 2019Q1

REPORT INFORMATION
  Report Type: Spontaneous
  Country: US (occurrence: US)
  Receive Date: 20190105
  Receipt Date: 20190119
  Transmission Date: 20190417
  Serious: Yes (Life-Threatening, Other)
  Sender: FDA-Public Use
  Company Number: US-ACCORD-099272

PATIENT
  Age: 63 Year
  Sex: Male

DRUGS (2)
  1. LOSARTAN. [Concomitant]
     Active Substance: LOSARTAN
     Indication: HYPERTENSION
  2. METHOTREXATE. [Suspect]
     Active Substance: METHOTREXATE
     Indication: PSORIATIC ARTHROPATHY
     Dosage: 15 MG WEEKLY SINCE 1990
     Dates: start: 1990

REACTIONS (2)
  - Chronic lymphocytic leukaemia stage 4 [Recovering/Resolving]
  - B-cell small lymphocytic lymphoma stage IV [Recovering/Resolving]

NARRATIVE: CASE EVENT DATE: 20101123
